FAERS Safety Report 20697358 (Version 1)
Quarter: 2022Q2

REPORT INFORMATION
  Report Type: Spontaneous
  Country: US (occurrence: None)
  Receive Date: 20220408
  Receipt Date: 20220408
  Transmission Date: 20220721
  Serious: No
  Sender: FDA-Public Use
  Company Number: None

PATIENT
  Age: 46 Year
  Sex: Male
  Weight: 77.11 kg

DRUGS (1)
  1. BUPRENORPHINE\NALOXONE [Suspect]
     Active Substance: BUPRENORPHINE\NALOXONE
     Indication: Drug dependence
     Dosage: OTHER QUANTITY : 1-2 TABS DAILY??TAKING THE PRODUCT AND  DATE THE PERSON STOPPED TAKING:  APPROX 5 Y

REACTIONS (5)
  - Headache [None]
  - Swollen tongue [None]
  - Glossodynia [None]
  - Pain [None]
  - Feeling abnormal [None]
